FAERS Safety Report 9402058 (Version 2)
Quarter: 2013Q3

REPORT INFORMATION
  Report Type: Report from Study
  Country: US (occurrence: US)
  Receive Date: 20130716
  Receipt Date: 20130801
  Transmission Date: 20140515
  Serious: Yes (Hospitalization, Other)
  Sender: FDA-Public Use
  Company Number: PHEH2013US012952

PATIENT
  Age: 84 Year
  Sex: Female

DRUGS (2)
  1. EXELON PATCH [Suspect]
     Indication: DEMENTIA ALZHEIMER^S TYPE
     Dosage: 13.3 MG, DAILY
     Route: 062
     Dates: start: 2010
  2. EXELON PATCH [Suspect]
     Dosage: 9.5 MG, UNK
     Route: 062
     Dates: start: 20121115

REACTIONS (4)
  - Bunion [Unknown]
  - Drug intolerance [Unknown]
  - Confusional state [Unknown]
  - Drug ineffective [Unknown]
